FAERS Safety Report 25024949 (Version 1)
Quarter: 2025Q1

REPORT INFORMATION
  Report Type: Spontaneous
  Country: RU (occurrence: RU)
  Receive Date: 20250228
  Receipt Date: 20250228
  Transmission Date: 20250409
  Serious: Yes (Other)
  Sender: ELI LILLY AND COMPANY
  Company Number: RU-ELI_LILLY_AND_COMPANY-RU202502020378

PATIENT
  Age: 8 Year
  Sex: Male
  Weight: 20 kg

DRUGS (2)
  1. HUMALOG [Suspect]
     Active Substance: INSULIN LISPRO
     Indication: Type 1 diabetes mellitus
     Dosage: 5 U, TID
     Route: 058
     Dates: start: 20221114, end: 20221115
  2. TOUJEO [Concomitant]
     Active Substance: INSULIN GLARGINE
     Indication: Type 1 diabetes mellitus
     Dosage: 5 U, DAILY
     Route: 058
     Dates: start: 20221114, end: 202301

REACTIONS (1)
  - Dermatitis allergic [Recovered/Resolved]
